FAERS Safety Report 17818871 (Version 7)
Quarter: 2020Q3

REPORT INFORMATION
  Report Type: Spontaneous
  Country: PL (occurrence: PL)
  Receive Date: 20200522
  Receipt Date: 20200722
  Transmission Date: 20201102
  Serious: Yes (Other)
  Sender: FDA-Public Use
  Company Number: NVSC2020PL141147

PATIENT
  Age: 70 Year
  Sex: Male

DRUGS (9)
  1. ZOLEDRONIC ACID [Suspect]
     Active Substance: ZOLEDRONIC ACID
     Indication: PROPHYLAXIS
  2. DOCETAXEL. [Suspect]
     Active Substance: DOCETAXEL
     Indication: PROSTATE CANCER
     Dosage: 75 MG/M2 (EVERY 21 DAYS)
     Route: 065
  3. LEUPRORELIN ACETATE [Suspect]
     Active Substance: LEUPROLIDE ACETATE
     Indication: PROSTATE CANCER
     Dosage: UNK
     Route: 065
  4. BICALUTAMIDE. [Suspect]
     Active Substance: BICALUTAMIDE
     Indication: METASTASES TO BONE
  5. ZOLEDRONIC ACID [Suspect]
     Active Substance: ZOLEDRONIC ACID
     Indication: OSTEOPOROSIS
     Dosage: UNK
     Route: 065
     Dates: start: 2016
  6. ZOLEDRONIC ACID [Suspect]
     Active Substance: ZOLEDRONIC ACID
     Indication: METASTASES TO BONE
  7. BICALUTAMIDE. [Suspect]
     Active Substance: BICALUTAMIDE
     Indication: CANCER HORMONAL THERAPY
  8. BICALUTAMIDE. [Suspect]
     Active Substance: BICALUTAMIDE
     Indication: HORMONE THERAPY
     Dosage: 50 MG, QH
     Route: 048
  9. BICALUTAMIDE. [Suspect]
     Active Substance: BICALUTAMIDE
     Indication: ADENOCARCINOMA
     Dosage: 50 MG, QD
     Route: 048
     Dates: start: 2016

REACTIONS (8)
  - Skin disorder [Unknown]
  - Neutropenia [Unknown]
  - Hot flush [Recovered/Resolved]
  - Prostatic specific antigen increased [Unknown]
  - Peripheral sensory neuropathy [Unknown]
  - Anaemia [Unknown]
  - Asthenia [Recovered/Resolved]
  - Neoplasm progression [Unknown]
